FAERS Safety Report 25939920 (Version 1)
Quarter: 2025Q4

REPORT INFORMATION
  Report Type: Report from Study
  Country: MX (occurrence: MX)
  Receive Date: 20251020
  Receipt Date: 20251020
  Transmission Date: 20260118
  Serious: Yes (Death, Hospitalization, Other)
  Sender: ABBVIE
  Company Number: MX-ABBVIE-6509502

PATIENT
  Age: 84 Year
  Sex: Female

DRUGS (1)
  1. VENCLEXTA [Suspect]
     Active Substance: VENETOCLAX
     Indication: Chronic lymphocytic leukaemia
     Dosage: LAST ADMIN DATE:2025?100 MG X 120
     Route: 048
     Dates: start: 20250401

REACTIONS (6)
  - Death [Fatal]
  - Blood pressure decreased [Unknown]
  - Blood glucose decreased [Unknown]
  - Paralysis [Unknown]
  - Uterine neoplasm [Unknown]
  - Hypophagia [Unknown]

NARRATIVE: CASE EVENT DATE: 20250101
